FAERS Safety Report 4760010-1 (Version None)
Quarter: 2005Q3

REPORT INFORMATION
  Report Type: 
  Country: None (occurrence: None)
  Receive Date: 20050831
  Receipt Date: 20050831
  Transmission Date: 20060218
  Serious: No
  Sender: FDA-Public Use
  Company Number: None

PATIENT
  Sex: Male

DRUGS (3)
  1. DEPAKENE [Suspect]
     Dosage: QID ORALLY FOR AT LEAST 3 YEARS UNTIL MAY2005, 2 WEEKS AGO
     Route: 048
     Dates: end: 20050501
  2. CLOZARIL [Concomitant]
  3. SEROQUEL [Concomitant]

REACTIONS (1)
  - PLATELET COUNT DECREASED [None]
